FAERS Safety Report 24024056 (Version 8)
Quarter: 2024Q3

REPORT INFORMATION
  Report Type: Report from Study
  Country: TR (occurrence: TR)
  Receive Date: 20240627
  Receipt Date: 20240710
  Transmission Date: 20241016
  Serious: No
  Sender: ROCHE
  Company Number: TR-ROCHE-3126948

PATIENT
  Age: 36 Year
  Sex: Male
  Weight: 68.0 kg

DRUGS (28)
  1. ALECTINIB [Suspect]
     Active Substance: ALECTINIB
     Indication: Lung cancer metastatic
     Route: 048
     Dates: start: 20210611
  2. ALECTINIB [Suspect]
     Active Substance: ALECTINIB
     Route: 048
     Dates: start: 20220517, end: 20220614
  3. ALECTINIB [Suspect]
     Active Substance: ALECTINIB
     Route: 048
     Dates: start: 20221103, end: 20221215
  4. ALECTINIB [Suspect]
     Active Substance: ALECTINIB
     Route: 048
     Dates: start: 20230522, end: 20230605
  5. ALECTINIB [Suspect]
     Active Substance: ALECTINIB
     Route: 048
     Dates: start: 20210324
  6. ACETAMINOPHEN\CAFFEINE\CODEINE PHOSPHATE [Concomitant]
     Active Substance: ACETAMINOPHEN\CAFFEINE\CODEINE PHOSPHATE
     Indication: Bone pain
     Dosage: 20 TABLET
     Route: 065
     Dates: start: 20210310
  7. DEXAMETHASONE [Concomitant]
     Active Substance: DEXAMETHASONE
     Indication: Oedema
     Route: 048
     Dates: start: 20220223
  8. DEXAMETHASONE [Concomitant]
     Active Substance: DEXAMETHASONE
     Route: 048
     Dates: start: 20210317
  9. BEVACIZUMAB [Concomitant]
     Active Substance: BEVACIZUMAB
     Indication: Radiation necrosis
     Dates: start: 20221031, end: 20221103
  10. BEVACIZUMAB [Concomitant]
     Active Substance: BEVACIZUMAB
     Dates: start: 20220517, end: 20221103
  11. BEVACIZUMAB [Concomitant]
     Active Substance: BEVACIZUMAB
     Dates: start: 20230106, end: 20231028
  12. BEVACIZUMAB [Concomitant]
     Active Substance: BEVACIZUMAB
     Route: 042
     Dates: start: 20230522, end: 20230605
  13. BEVACIZUMAB [Concomitant]
     Active Substance: BEVACIZUMAB
     Route: 042
     Dates: start: 20221103, end: 20221215
  14. BEVACIZUMAB [Concomitant]
     Active Substance: BEVACIZUMAB
     Route: 042
     Dates: start: 20220517, end: 20220614
  15. DELTACORTRIL [Concomitant]
     Active Substance: PREDNISOLONE
     Route: 048
     Dates: start: 20210907, end: 20231029
  16. SULFASALAZINE [Concomitant]
     Active Substance: SULFASALAZINE
     Route: 048
     Dates: start: 20210907, end: 20231029
  17. D-COLEFOR [Concomitant]
     Indication: Vitamin D deficiency
     Route: 048
     Dates: start: 20210907
  18. KEPPRA [Concomitant]
     Active Substance: LEVETIRACETAM
     Route: 048
     Dates: start: 20220825
  19. BENADAY [Concomitant]
     Indication: Fatigue
     Route: 048
     Dates: start: 20220825
  20. LANSOPRAZOLE [Concomitant]
     Active Substance: LANSOPRAZOLE
     Route: 048
     Dates: start: 20220825
  21. LANSOPRAZOLE [Concomitant]
     Active Substance: LANSOPRAZOLE
     Route: 048
     Dates: start: 20210317
  22. LORLATINIB [Concomitant]
     Active Substance: LORLATINIB
     Dates: start: 20230106, end: 20231028
  23. LORLATINIB [Concomitant]
     Active Substance: LORLATINIB
     Dates: start: 20230109, end: 20231028
  24. BEVACIZUMAB [Concomitant]
     Active Substance: BEVACIZUMAB
     Dates: start: 20211103, end: 20220614
  25. CIPRALEX [Concomitant]
     Active Substance: ESCITALOPRAM OXALATE
     Indication: Depression
     Route: 048
     Dates: start: 20221003
  26. BACTROBAN [Concomitant]
     Active Substance: MUPIROCIN CALCIUM
     Route: 008
     Dates: start: 20220517
  27. TANFLEX [Concomitant]
     Indication: Stomatitis
     Route: 048
     Dates: start: 20220614
  28. EPINEPHRINE\LIDOCAINE HYDROCHLORIDE [Concomitant]
     Active Substance: EPINEPHRINE\LIDOCAINE HYDROCHLORIDE
     Indication: Stomatitis
     Route: 048
     Dates: start: 20220614

REACTIONS (1)
  - Hypothyroidism [Unknown]

NARRATIVE: CASE EVENT DATE: 20210628
